FAERS Safety Report 18084876 (Version 1)
Quarter: 2020Q3

REPORT INFORMATION
  Report Type: Spontaneous
  Country: US (occurrence: US)
  Receive Date: 20200729
  Receipt Date: 20200729
  Transmission Date: 20201103
  Serious: No
  Sender: FDA-Public Use
  Company Number: US-SA-2020SA194525

PATIENT

DRUGS (1)
  1. DUPIXENT [Suspect]
     Active Substance: DUPILUMAB
     Indication: ASTHMA
     Dosage: 300 MG, QOW
     Route: 058

REACTIONS (7)
  - Vision blurred [Unknown]
  - Paranasal sinus hypersecretion [Unknown]
  - Hypermetropia [Unknown]
  - Eye irritation [Unknown]
  - Sinus disorder [Unknown]
  - Nasal septum deviation [Unknown]
  - Eye inflammation [Unknown]
